FAERS Safety Report 13424513 (Version 2)
Quarter: 2017Q2

REPORT INFORMATION
  Report Type: Report from Study
  Country: US (occurrence: US)
  Receive Date: 20170410
  Receipt Date: 20170414
  Transmission Date: 20170830
  Serious: No
  Sender: FDA-Public Use
  Company Number: US-TAKEDA-2017TUS007586

PATIENT
  Age: 41 Year
  Sex: Female
  Weight: 59 kg

DRUGS (12)
  1. TRAMADOL. [Concomitant]
     Active Substance: TRAMADOL
     Indication: MYALGIA
     Dosage: UNK
     Route: 065
     Dates: start: 20101015, end: 20150320
  2. TRAMADOL. [Concomitant]
     Active Substance: TRAMADOL
     Indication: PAIN
  3. FIORICET [Concomitant]
     Active Substance: ACETAMINOPHEN\BUTALBITAL\CAFFEINE
     Indication: MIGRAINE
  4. SOMA [Concomitant]
     Active Substance: CARISOPRODOL
     Indication: FIBROMYALGIA
  5. TRAMADOL. [Concomitant]
     Active Substance: TRAMADOL
     Indication: FIBROMYALGIA
  6. FIORICET [Concomitant]
     Active Substance: ACETAMINOPHEN\BUTALBITAL\CAFFEINE
     Indication: TENSION HEADACHE
  7. VORTIOXETINE [Suspect]
     Active Substance: VORTIOXETINE
     Indication: MAJOR DEPRESSION
     Dosage: 10 MG, QD
     Route: 065
     Dates: start: 20150320, end: 20150620
  8. SOMA [Concomitant]
     Active Substance: CARISOPRODOL
     Indication: MUSCLE SPASMS
  9. FIORICET [Concomitant]
     Active Substance: ACETAMINOPHEN\BUTALBITAL\CAFFEINE
     Indication: HEADACHE
     Dosage: UNK
     Route: 065
     Dates: start: 20141204
  10. SOMA [Concomitant]
     Active Substance: CARISOPRODOL
     Indication: MYALGIA
     Dosage: 350 MG, TID
     Route: 065
     Dates: start: 20140701, end: 20160906
  11. TOPAMAX [Concomitant]
     Active Substance: TOPIRAMATE
     Indication: HEADACHE
     Dosage: 50 MG, BID
     Route: 065
     Dates: start: 20141231
  12. TOPAMAX [Concomitant]
     Active Substance: TOPIRAMATE
     Indication: MIGRAINE

REACTIONS (1)
  - Sexual dysfunction [Unknown]
